FAERS Safety Report 14253016 (Version 1)
Quarter: 2017Q4

REPORT INFORMATION
  Report Type: Other
  Country: None (occurrence: US)
  Receive Date: 20171205
  Receipt Date: 20171205
  Transmission Date: 20180321
  Serious: Yes (Death, Other)
  Sender: FDA-Public Use
  Company Number: US-AKORN-74347

PATIENT
  Age: 60 Year
  Sex: Male

DRUGS (1)
  1. BRIMONIDINE TARTRATE 0.2% SOLUTION [Suspect]
     Active Substance: BRIMONIDINE TARTRATE

REACTIONS (2)
  - Death [Fatal]
  - Ocular ischaemic syndrome [Fatal]
